FAERS Safety Report 8912444 (Version 1)
Quarter: 2012Q4

REPORT INFORMATION
  Report Type: Spontaneous
  Country: US (occurrence: None)
  Receive Date: 20121113
  Receipt Date: 20121113
  Transmission Date: 20130627
  Serious: Yes (Hospitalization, Other)
  Sender: FDA-Public Use
  Company Number: 2012/161

PATIENT
  Age: 55 Year
  Sex: Female

DRUGS (10)
  1. CEFDINIR [Suspect]
     Indication: SINUS INFECTION
     Route: 048
     Dates: start: 20121005, end: 20121029
  2. PREDNISONE [Concomitant]
  3. BEOMEPRAZOLE MAGNESIUM (NEXIUM) [Concomitant]
  4. METFORMIN [Concomitant]
  5. LEVOTHYROXINE, LIO (ARMOUR THYROID) [Concomitant]
  6. CARVEDILOL (COREG) [Concomitant]
  7. MONTELUKAST [Concomitant]
  8. ESZOPICLON (LUNESTA) [Concomitant]
  9. ATORVASTATIN CALCIUM (LIPITOR) [Concomitant]
  10. VAKSARTAN (DIOVAN) [Concomitant]

REACTIONS (2)
  - Medication residue [None]
  - Vomiting [None]
